FAERS Safety Report 7619629-2 (Version None)
Quarter: 2011Q3

REPORT INFORMATION
  Report Type: 
  Country: None (occurrence: None)
  Receive Date: 20110719
  Receipt Date: 20081129
  Transmission Date: 20111222
  Serious: Yes (Other)
  Sender: FDA-Public Use
  Company Number: US-BAYER-200839729NA

PATIENT
  Age: 57 Year
  Sex: Female
  Weight: 90 kg

DRUGS (20)
  1. PROTAMINE SULFATE [Concomitant]
     Route: 042
  2. HESPAN IN EXCEL PLASTIC CONTAINER [Concomitant]
     Route: 042
  3. VERSED [Concomitant]
     Route: 042
  4. NITROGLYCERIN [Concomitant]
     Route: 042
  5. NITROGLYCERIN [Concomitant]
     Route: 060
  6. PRIMACOR [Concomitant]
  7. NIPRIDE [Concomitant]
     Route: 042
  8. OPTIRAY 300 [Concomitant]
     Indication: CATHETERISATION CARDIAC
     Dosage: 116 ML
     Dates: start: 20021003
  9. TRASYLOL [Suspect]
     Indication: PRODUCT USED FOR UNKNOWN INDICATION
     Dosage: 1 ML, ONCE
     Route: 042
     Dates: start: 20021004, end: 20021004
  10. SIMVASTATIN [Concomitant]
     Route: 048
  11. LASIX [Concomitant]
     Route: 048
  12. METOPROLOL TARTRATE [Concomitant]
     Route: 048
  13. KEFZOL [Concomitant]
     Route: 042
  14. TRASYLOL [Suspect]
     Indication: MITRAL VALVE REPAIR
     Dosage: 50CC/HR INFUSION
     Route: 042
     Dates: start: 20021004, end: 20021004
  15. LISINOPRIL [Concomitant]
     Dosage: UNK
     Route: 048
     Dates: start: 20020101
  16. IBUPROFEN [Concomitant]
     Dosage: AS NEEDED
     Route: 048
  17. ALBUTEROL SULFATE AUTOHALER [Concomitant]
     Route: 042
  18. LEVOTHYROXINE SODIUM [Concomitant]
     Route: 048
  19. NEXIUM [Concomitant]
     Route: 048
  20. LIDOCAINE [Concomitant]

REACTIONS (12)
  - ANXIETY [None]
  - UNEVALUABLE EVENT [None]
  - FEAR [None]
  - EMOTIONAL DISTRESS [None]
  - RENAL INJURY [None]
  - INJURY [None]
  - RENAL FAILURE [None]
  - MULTI-ORGAN FAILURE [None]
  - RENAL IMPAIRMENT [None]
  - PAIN [None]
  - ANHEDONIA [None]
  - STRESS [None]
